FAERS Safety Report 15432604 (Version 1)
Quarter: 2018Q3

REPORT INFORMATION
  Report Type: Spontaneous
  Country: JP (occurrence: JP)
  Receive Date: 20180927
  Receipt Date: 20180927
  Transmission Date: 20181010
  Serious: Yes (Hospitalization, Other)
  Sender: FDA-Public Use
  Company Number: JP-TAKEDA-2018TJP024380

PATIENT
  Age: 8 Decade
  Sex: Female

DRUGS (1)
  1. TAKEPRON CAPSULES 15 [Suspect]
     Active Substance: LANSOPRAZOLE
     Indication: PRODUCT USED FOR UNKNOWN INDICATION
     Dosage: UNK
     Route: 048

REACTIONS (4)
  - Hypomagnesaemia [Recovered/Resolved]
  - Blood calcium decreased [Unknown]
  - Quadriplegia [Unknown]
  - Blood potassium decreased [Unknown]
